FAERS Safety Report 5844524-9 (Version None)
Quarter: 2008Q3

REPORT INFORMATION
  Report Type: 
  Country: None (occurrence: None)
  Receive Date: 20080812
  Receipt Date: 20080731
  Transmission Date: 20090109
  Serious: Yes (Hospitalization)
  Sender: FDA-Public Use
  Company Number: 230480K07USA

PATIENT
  Age: 30 Year
  Sex: Female
  Weight: 77.1115 kg

DRUGS (5)
  1. REBIF [Suspect]
     Indication: MULTIPLE SCLEROSIS
     Dosage: 44 MCG, 3 IN 1 WEEKS, SUBCUTANEOUS
     Route: 058
     Dates: start: 20030604, end: 20080701
  2. AMITRIPTLINE HYDROCHLORIDE TAB [Concomitant]
  3. ORAL CONTRACEPTIVES (ORAL CONTRACEPTIVE NOS) [Concomitant]
  4. PROVIGIL [Concomitant]
  5. WELLBUTRIN [Concomitant]

REACTIONS (6)
  - CONDITION AGGRAVATED [None]
  - GAIT DISTURBANCE [None]
  - MULTIPLE SCLEROSIS [None]
  - PARALYSIS [None]
  - PYREXIA [None]
  - VIRAL INFECTION [None]
